FAERS Safety Report 21131872 (Version 1)
Quarter: 2022Q3

REPORT INFORMATION
  Report Type: Spontaneous
  Country: US (occurrence: US)
  Receive Date: 20220726
  Receipt Date: 20220726
  Transmission Date: 20221027
  Serious: Yes (Hospitalization)
  Sender: FDA-Public Use
  Company Number: US-AMGEN-USASP2022122852

PATIENT
  Age: 4 Year
  Sex: Male

DRUGS (2)
  1. PROLIA [Suspect]
     Active Substance: DENOSUMAB
     Indication: Fibrous dysplasia of jaw
     Dosage: 40 MILLIGRAM
     Route: 058
  2. PROLIA [Suspect]
     Active Substance: DENOSUMAB
     Dosage: 20 MILLIGRAM, Q4WK
     Route: 058

REACTIONS (5)
  - Hypocalcaemia [Unknown]
  - Drug effective for unapproved indication [Unknown]
  - Off label use [Unknown]
  - Tetany [Unknown]
  - Pain in extremity [Unknown]
